FAERS Safety Report 17152213 (Version 2)
Quarter: 2020Q4

REPORT INFORMATION
  Report Type: Spontaneous
  Country: DE (occurrence: DE)
  Receive Date: 20191213
  Receipt Date: 20201116
  Transmission Date: 20210113
  Serious: Yes (Other)
  Sender: FDA-Public Use
  Company Number: DE-MYLANLABS-2019M1122393

PATIENT
  Sex: Female
  Weight: 72 kg

DRUGS (11)
  1. FORMOTEROL [Suspect]
     Active Substance: FORMOTEROL
     Indication: ASTHMA
     Dosage: 1 OT(PUFF), BID
     Route: 065
  2. MONTELUKAST [Suspect]
     Active Substance: MONTELUKAST SODIUM
     Indication: ASTHMA
     Dosage: UNK
     Route: 065
  3. SALBUTAMOL [Suspect]
     Active Substance: ALBUTEROL
     Indication: ASTHMA
     Dosage: UNK
     Route: 065
  4. PREDNISOLONE. [Suspect]
     Active Substance: PREDNISOLONE
     Dosage: 22.5 TO 15 MG, UNK
     Route: 065
  5. DEXAMETHASONE. [Suspect]
     Active Substance: DEXAMETHASONE
     Indication: ASTHMA
     Dosage: UNK
  6. FORMOTEROL [Suspect]
     Active Substance: FORMOTEROL
     Dosage: UNK
     Route: 065
  7. PREDNISOLONE. [Suspect]
     Active Substance: PREDNISOLONE
     Indication: ASTHMA
     Dosage: UNK
     Route: 065
  8. BUDESONIDE. [Suspect]
     Active Substance: BUDESONIDE
     Dosage: 400 UG, BID
     Route: 065
  9. BUDESONIDE. [Suspect]
     Active Substance: BUDESONIDE
     Indication: ASTHMA
     Dosage: UNK
     Route: 065
  10. REPROTEROL/SODIUM CROMOGLICATE [Suspect]
     Active Substance: CROMOLYN SODIUM\REPROTEROL HYDROCHLORIDE
     Indication: ASTHMA
     Dosage: UNK
     Route: 065
  11. CORTISONE ACETATE. [Suspect]
     Active Substance: CORTISONE ACETATE
     Indication: ASTHMA
     Dosage: UNK
     Route: 065

REACTIONS (4)
  - Asthma [Unknown]
  - Bronchitis [Unknown]
  - Female reproductive neoplasm [Unknown]
  - Drug ineffective [Unknown]

NARRATIVE: CASE EVENT DATE: 200809
